FAERS Safety Report 19929614 (Version 2)
Quarter: 2021Q4

REPORT INFORMATION
  Report Type: Spontaneous
  Country: US (occurrence: US)
  Receive Date: 20211007
  Receipt Date: 20211019
  Transmission Date: 20220303
  Serious: Yes (Hospitalization, Other)
  Sender: FDA-Public Use
  Company Number: US-RIGEL PHARMACEUTICALS, INC.-2021FOS000619

PATIENT
  Age: 60 Year
  Sex: Female

DRUGS (2)
  1. TAVALISSE [Suspect]
     Active Substance: FOSTAMATINIB
     Indication: Immune thrombocytopenia
     Dosage: 100 MG, BID
     Route: 048
     Dates: start: 20210902
  2. TAVALISSE [Suspect]
     Active Substance: FOSTAMATINIB
     Dosage: 150 MG, BID, TAKING ONE AT 3PM AND THEN ANOTHER A FEW HOURS LATER
     Route: 048
     Dates: start: 202109

REACTIONS (15)
  - Full blood count abnormal [Unknown]
  - Platelet count decreased [Unknown]
  - Internal haemorrhage [Unknown]
  - Neuropathy peripheral [Unknown]
  - Oral blood blister [Unknown]
  - Platelet count [Unknown]
  - Gingival bleeding [Unknown]
  - Headache [Unknown]
  - Pain [Unknown]
  - Pyrexia [Unknown]
  - Product dose omission issue [Unknown]
  - Inappropriate schedule of product administration [Unknown]
  - Chest pain [Unknown]
  - Dyspnoea [Unknown]
  - Dizziness [Unknown]

NARRATIVE: CASE EVENT DATE: 20210901
